FAERS Safety Report 25525569 (Version 1)
Quarter: 2025Q2

REPORT INFORMATION
  Report Type: Spontaneous
  Country: US (occurrence: None)
  Receive Date: 20250630
  Receipt Date: 20250630
  Transmission Date: 20250717
  Serious: Yes (Disabling)
  Sender: FDA-CTU
  Company Number: None

PATIENT
  Age: 37 Year
  Sex: Female
  Weight: 93.15 kg

DRUGS (7)
  1. COSMETICS [Suspect]
     Active Substance: COSMETICS
     Indication: Dental caries
     Dosage: FREQUENCY : DAILY;?
     Route: 048
     Dates: start: 20200523, end: 20250314
  2. TMG [Concomitant]
  3. HERBALS\SAW PALMETTO [Concomitant]
     Active Substance: HERBALS\SAW PALMETTO
  4. DIMETHYL SULFONE\GLUCOSAMINE SULFATE [Concomitant]
     Active Substance: DIMETHYL SULFONE\GLUCOSAMINE SULFATE
  5. VITAMIN B COMPLEX [Concomitant]
     Active Substance: CYANOCOBALAMIN\DEXPANTHENOL\NIACINAMIDE\PYRIDOXINE HYDROCHLORIDE\RIBOFLAVIN 5^-PHOSPHATE SODIUM\THIA
  6. VITAMIN D3 [Concomitant]
     Active Substance: CHOLECALCIFEROL
  7. MENAQUINONE 6 [Concomitant]
     Active Substance: MENAQUINONE 6

REACTIONS (7)
  - Suspected product contamination [None]
  - Emotional disorder [None]
  - Bone disorder [None]
  - Asthenia [None]
  - Alopecia [None]
  - Fatigue [None]
  - Nervous system disorder [None]

NARRATIVE: CASE EVENT DATE: 20250319
